FAERS Safety Report 19653486 (Version 1)
Quarter: 2021Q3

REPORT INFORMATION
  Report Type: Report from Study
  Country: TW (occurrence: TW)
  Receive Date: 20210804
  Receipt Date: 20210804
  Transmission Date: 20211014
  Serious: Yes (Other)
  Sender: FDA-Public Use
  Company Number: TW-SUN PHARMACEUTICAL INDUSTRIES LTD-2021R1-306283

PATIENT

DRUGS (2)
  1. CARVEDILOL. [Suspect]
     Active Substance: CARVEDILOL
     Indication: ERYTHEMA
     Dosage: UNK
     Route: 048
  2. IVERMECTIN. [Suspect]
     Active Substance: IVERMECTIN
     Indication: ERYTHEMA
     Dosage: UNK
     Route: 061

REACTIONS (1)
  - Condition aggravated [Unknown]
